FAERS Safety Report 9357767 (Version 1)
Quarter: 2013Q2

REPORT INFORMATION
  Report Type: Report from Study
  Country: KR (occurrence: KR)
  Receive Date: 20130620
  Receipt Date: 20130620
  Transmission Date: 20140414
  Serious: Yes (Death)
  Sender: FDA-Public Use
  Company Number: KR-SANOFI-AVENTIS-2013SA059999

PATIENT
  Age: 72 Year
  Sex: Female
  Weight: 43 kg

DRUGS (2)
  1. LANTUS [Suspect]
     Indication: DIABETES MELLITUS
     Dosage: DOSE:10 UNIT(S)
     Route: 058
  2. APIDRA [Suspect]
     Indication: DIABETES MELLITUS
     Dosage: DOSE: 4-0-2 UNITS
     Route: 058

REACTIONS (1)
  - Death [Fatal]
